FAERS Safety Report 10096082 (Version 1)
Quarter: 2014Q2

REPORT INFORMATION
  Report Type: Spontaneous
  Country: US (occurrence: None)
  Receive Date: 20140410
  Receipt Date: 20140410
  Transmission Date: 20141212
  Serious: Yes (Other)
  Sender: FDA-Public Use
  Company Number: 583475

PATIENT
  Sex: Female

DRUGS (3)
  1. MORPHINE SULPHATE [Suspect]
     Indication: FIBROMYALGIA
  2. CELEBREX [Suspect]
     Indication: PRODUCT USED FOR UNKNOWN INDICATION
  3. ANTIHYPERTENSIVES [Concomitant]

REACTIONS (3)
  - Overdose [None]
  - Paraesthesia [None]
  - Memory impairment [None]
